FAERS Safety Report 18326267 (Version 1)
Quarter: 2020Q3

REPORT INFORMATION
  Report Type: Spontaneous
  Country: FR (occurrence: FR)
  Receive Date: 20200929
  Receipt Date: 20200929
  Transmission Date: 20201103
  Serious: Yes (Death)
  Sender: FDA-Public Use
  Company Number: FR-INDIVIOR US-INDV-126513-2020

PATIENT
  Age: 49 Year
  Sex: Male

DRUGS (3)
  1. SUBUTEX [Suspect]
     Active Substance: BUPRENORPHINE HYDROCHLORIDE
     Indication: PRODUCT USED FOR UNKNOWN INDICATION
     Dosage: 6 MILLIGRAM, QD
     Route: 065
  2. ALCOHOL. [Suspect]
     Active Substance: ALCOHOL
     Indication: ALCOHOL USE
     Dosage: UNK
     Route: 048
  3. NICOTIANA TABACUM [Suspect]
     Active Substance: TOBACCO LEAF
     Indication: TOBACCO USER
     Dosage: UNK
     Route: 055

REACTIONS (2)
  - Multiple organ dysfunction syndrome [Fatal]
  - Drug abuse [Fatal]

NARRATIVE: CASE EVENT DATE: 20200821
